FAERS Safety Report 19200674 (Version 1)
Quarter: 2021Q2

REPORT INFORMATION
  Report Type: Spontaneous
  Country: CH (occurrence: CH)
  Receive Date: 20210430
  Receipt Date: 20210430
  Transmission Date: 20210717
  Serious: Yes (Other)
  Sender: FDA-Public Use
  Company Number: CH-PFIZER INC-2021442377

PATIENT
  Age: 65 Year
  Sex: Male

DRUGS (5)
  1. DUODART [Concomitant]
     Active Substance: DUTASTERIDE\TAMSULOSIN
     Dosage: UNK
  2. CYTOSAR [Suspect]
     Active Substance: CYTARABINE
     Dosage: 1000 MG/M2, CYCLIC
     Route: 041
     Dates: start: 20210201, end: 20210207
  3. AMSIDYL [Concomitant]
     Active Substance: AMSACRINE
     Dosage: 120 MG/M2, CYCLIC
     Route: 041
     Dates: start: 20210201, end: 20210203
  4. CYTOSAR [Suspect]
     Active Substance: CYTARABINE
     Dosage: 200 MG/M2, CYCLIC
     Route: 041
     Dates: start: 20210112, end: 20210118
  5. IDARUBICIN [Concomitant]
     Active Substance: IDARUBICIN
     Dosage: 12 MG/M2, CYCLIC
     Route: 041
     Dates: start: 20210104, end: 20210112

REACTIONS (6)
  - Diverticulitis intestinal perforated [Recovering/Resolving]
  - Toxic erythema of chemotherapy [Recovering/Resolving]
  - Colitis [Recovered/Resolved]
  - Abscess [Recovered/Resolved]
  - Gastrointestinal inflammation [Recovering/Resolving]
  - Mucosal inflammation [Recovering/Resolving]

NARRATIVE: CASE EVENT DATE: 20210118
